FAERS Safety Report 14702349 (Version 1)
Quarter: 2018Q2

REPORT INFORMATION
  Report Type: Spontaneous
  Country: CA (occurrence: CA)
  Receive Date: 20180401
  Receipt Date: 20180401
  Transmission Date: 20180711
  Serious: No
  Sender: FDA-Public Use
  Company Number: CA-TEVA-2018-CA-875668

PATIENT
  Sex: Female
  Weight: 155.72 kg

DRUGS (1)
  1. CABERGOLINE. [Suspect]
     Active Substance: CABERGOLINE
     Route: 065

REACTIONS (2)
  - Product substitution issue [Recovered/Resolved]
  - Vomiting [Recovered/Resolved]
